FAERS Safety Report 13831384 (Version 1)
Quarter: 2017Q3

REPORT INFORMATION
  Report Type: Spontaneous
  Country: UA (occurrence: UA)
  Receive Date: 20170803
  Receipt Date: 20170803
  Transmission Date: 20171127
  Serious: Yes (Other)
  Sender: FDA-Public Use
  Company Number: UA-JNJFOC-20170723543

PATIENT

DRUGS (3)
  1. L-ARGININE HYDROCHLORIDE [Concomitant]
     Indication: PROPHYLAXIS
     Route: 042
  2. ARGININE ASPARTATE [Concomitant]
     Active Substance: ARGININE ASPARTATE
     Indication: PROPHYLAXIS
     Route: 048
  3. DOXORUBICIN HYDROCHLORIDE. [Suspect]
     Active Substance: DOXORUBICIN HYDROCHLORIDE
     Indication: ACUTE LEUKAEMIA
     Route: 065

REACTIONS (3)
  - Endothelial dysfunction [Unknown]
  - Product use in unapproved indication [Unknown]
  - Off label use [Unknown]
